FAERS Safety Report 7641712-6 (Version None)
Quarter: 2011Q3

REPORT INFORMATION
  Report Type: 
  Country: None (occurrence: None)
  Receive Date: 20110728
  Receipt Date: 20100720
  Transmission Date: 20111222
  Serious: No
  Sender: FDA-Public Use
  Company Number: US-PFIZER INC-US-WYE-H16483710

PATIENT
  Age: 12 Year
  Sex: Female
  Weight: 37.7 kg

DRUGS (2)
  1. IBUPROFEN [Suspect]
     Indication: MUSCLE SPASMS
  2. IBUPROFEN [Suspect]
     Indication: HEADACHE
     Dosage: 3 TEASPOON AS NEEDED
     Route: 048
     Dates: start: 20010101, end: 20100701

REACTIONS (2)
  - PAIN IN EXTREMITY [None]
  - EYE SWELLING [None]
